FAERS Safety Report 17422624 (Version 1)
Quarter: 2020Q1

REPORT INFORMATION
  Report Type: Report from Study
  Country: CN (occurrence: CN)
  Receive Date: 20200215
  Receipt Date: 20200215
  Transmission Date: 20200409
  Serious: Yes (Other)
  Sender: FDA-Public Use
  Company Number: CN-ROCHE-2549658

PATIENT
  Age: 32 Year
  Sex: Female

DRUGS (10)
  1. PRANOPROFEN [Concomitant]
     Active Substance: PRANOPROFEN
     Indication: RETINAL VEIN OCCLUSION
     Route: 065
  2. SODIUM HYALURONATE [Concomitant]
     Active Substance: HYALURONATE SODIUM
     Indication: MACULAR OEDEMA
     Dosage: 0.1 OT, UNKNOWN
     Route: 031
     Dates: start: 20190817, end: 20190915
  3. SODIUM HYALURONATE [Concomitant]
     Active Substance: HYALURONATE SODIUM
     Indication: RETINAL VEIN OCCLUSION
     Route: 065
  4. RANIBIZUMAB. [Suspect]
     Active Substance: RANIBIZUMAB
     Indication: RETINAL VEIN OCCLUSION
     Route: 065
     Dates: start: 20190805
  5. DIOSMIN [Concomitant]
     Active Substance: DIOSMIN
     Indication: RETINAL VEIN OCCLUSION
     Dosage: 2 OT, UNKNOWN
     Route: 048
     Dates: start: 20190921
  6. RANIBIZUMAB. [Suspect]
     Active Substance: RANIBIZUMAB
     Indication: MACULAR OEDEMA
     Dosage: 0.05
     Route: 065
     Dates: start: 20190624
  7. DIOSMIN [Concomitant]
     Active Substance: DIOSMIN
     Indication: MACULAR OEDEMA
     Dosage: 0.9 OT, UNK
     Route: 048
     Dates: start: 20190805, end: 20190816
  8. PRANOPROFEN [Concomitant]
     Active Substance: PRANOPROFEN
     Indication: MACULAR OEDEMA
     Dosage: 01 OT, UNKNOWN
     Route: 031
     Dates: start: 20190817, end: 20190915
  9. COMPOUND RUTIN [Concomitant]
     Indication: MACULAR OEDEMA
     Dosage: 2 OT, UNK
     Route: 048
     Dates: start: 20190610, end: 20190626
  10. COMPOUND RUTIN [Concomitant]
     Indication: RETINAL VEIN OCCLUSION
     Route: 065

REACTIONS (1)
  - Ocular hypertension [Recovered/Resolved]

NARRATIVE: CASE EVENT DATE: 20190806
